FAERS Safety Report 9227669 (Version 1)
Quarter: 2013Q1

REPORT INFORMATION
  Report Type: Spontaneous
  Country: US (occurrence: None)
  Receive Date: 20121031
  Receipt Date: 20121031
  Transmission Date: 20140127
  Serious: No
  Sender: FDA-Public Use
  Company Number: PHEH2012US015639

PATIENT
  Age: 42 Year
  Sex: Female
  Weight: 108.8 kg

DRUGS (6)
  1. GILENYA (FTY)CAPSULE, 0.5MG [Suspect]
     Route: 048
  2. METFORMIN (METFORMIN) [Concomitant]
  3. JANUVIA (SITAGLIPTIN PHOSPHATE) [Concomitant]
  4. GLIMEPIRIDE [Concomitant]
  5. MELOXICAM (MELOXICAM) [Concomitant]
  6. SYNTHROID (LEVOTHYROXINE SODIUM) [Concomitant]

REACTIONS (1)
  - Constipation [None]
